FAERS Safety Report 4782432-5 (Version None)
Quarter: 2005Q3

REPORT INFORMATION
  Report Type: 
  Country: None (occurrence: None)
  Receive Date: 20050929
  Receipt Date: 20041012
  Transmission Date: 20060218
  Serious: No
  Sender: FDA-Public Use
  Company Number: 386195

PATIENT
  Sex: Female

DRUGS (2)
  1. COREG [Suspect]
     Indication: MIGRAINE PROPHYLAXIS
     Dosage: 12MG TWICE PER DAY
     Route: 048
  2. PREDNISONE [Concomitant]
     Indication: RHEUMATOID ARTHRITIS

REACTIONS (4)
  - DYSPHONIA [None]
  - MYALGIA [None]
  - PAIN [None]
  - PHARYNGOLARYNGEAL PAIN [None]
